FAERS Safety Report 5070186-7 (Version None)
Quarter: 2006Q3

REPORT INFORMATION
  Report Type: 
  Country: None (occurrence: None)
  Receive Date: 20060803
  Receipt Date: 20060519
  Transmission Date: 20061208
  Serious: Yes (Hospitalization)
  Sender: FDA-Public Use
  Company Number: CA-BOEHRINGER INGELHEIM PHARMACEUTICALS, INC.-2006-CN-00276CN

PATIENT
  Sex: Female
  Weight: 61 kg

DRUGS (3)
  1. MICARDIS HCT [Suspect]
     Indication: HYPERTENSION
     Route: 048
     Dates: start: 20050601, end: 20060328
  2. COUMADIN [Concomitant]
     Indication: PROPHYLAXIS
     Route: 048
     Dates: start: 20041231
  3. ACETAMINOPHEN [Concomitant]
     Indication: HEADACHE
     Route: 048
     Dates: start: 20041231

REACTIONS (4)
  - ASTHENIA [None]
  - DIZZINESS [None]
  - DYSPNOEA [None]
  - HAEMATOCHEZIA [None]
